FAERS Safety Report 4851123-4 (Version None)
Quarter: 2005Q4

REPORT INFORMATION
  Report Type: 
  Country: None (occurrence: None)
  Receive Date: 20051212
  Receipt Date: 20051201
  Transmission Date: 20060501
  Serious: Yes (Hospitalization)
  Sender: FDA-Public Use
  Company Number: US-JNJFOC-20051200779

PATIENT
  Sex: Female

DRUGS (9)
  1. INFLIXIMAB [Suspect]
     Indication: RHEUMATOID ARTHRITIS
     Route: 042
  2. ASPIRIN [Concomitant]
  3. PRILOSEC [Concomitant]
  4. METOPROLOL [Concomitant]
  5. METFORMIN [Concomitant]
  6. RELAFEN [Concomitant]
  7. PREDNISONE [Concomitant]
  8. LASIX [Concomitant]
  9. LIPITOR [Concomitant]

REACTIONS (2)
  - ASTHMA [None]
  - BRONCHITIS [None]
